FAERS Safety Report 10713900 (Version 2)
Quarter: 2015Q1

REPORT INFORMATION
  Report Type: Spontaneous
  Country: DE (occurrence: DE)
  Receive Date: 20150115
  Receipt Date: 20150116
  Transmission Date: 20150721
  Serious: Yes (Other)
  Sender: FDA-Public Use
  Company Number: PHHY2015DE001638

PATIENT
  Age: 1 Day
  Sex: Male

DRUGS (4)
  1. RITALIN [Suspect]
     Active Substance: METHYLPHENIDATE HYDROCHLORIDE
     Dosage: MATERNAL DOSE: 60 MG PER DAY
     Route: 064
  2. CITALOPRAM [Suspect]
     Active Substance: CITALOPRAM HYDROBROMIDE
     Dosage: MATERNAL DOSE: 60 MG PER DAY
     Route: 064
  3. L-THYROXINE//LEVOTHYROXINE [Concomitant]
     Dosage: MATERNAL DOSE: 1 DF, QD (50 UG)
     Route: 064
     Dates: start: 20140307, end: 20141118
  4. BROMAZEPAM [Suspect]
     Active Substance: BROMAZEPAM
     Dosage: MATERNAL DOSE: 6 MG PER DAY
     Route: 064

REACTIONS (4)
  - Bradycardia neonatal [Recovering/Resolving]
  - Apnoea neonatal [Recovering/Resolving]
  - Tremor neonatal [Recovering/Resolving]
  - Hypertonia neonatal [Recovering/Resolving]

NARRATIVE: CASE EVENT DATE: 20141118
